FAERS Safety Report 12549547 (Version 2)
Quarter: 2016Q3

REPORT INFORMATION
  Report Type: Report from Study
  Country: PA (occurrence: PA)
  Receive Date: 20160712
  Receipt Date: 20160912
  Transmission Date: 20161109
  Serious: Yes (Other)
  Sender: FDA-Public Use
  Company Number: PHHY2015PA036927

PATIENT
  Age: 45 Year
  Sex: Female

DRUGS (1)
  1. GILENYA [Suspect]
     Active Substance: FINGOLIMOD HYDROCHLORIDE
     Indication: PRODUCT USED FOR UNKNOWN INDICATION
     Dosage: 0.5 MG, UNK
     Route: 065

REACTIONS (13)
  - Central nervous system lesion [Unknown]
  - Anxiety [Unknown]
  - Malaise [Unknown]
  - Poor quality sleep [Unknown]
  - Vertebral osteophyte [Unknown]
  - Back pain [Unknown]
  - Abdominal discomfort [Unknown]
  - Burning sensation [Unknown]
  - Headache [Unknown]
  - Head discomfort [Unknown]
  - Swelling [Unknown]
  - Intervertebral disc disorder [Unknown]
  - Fatigue [Unknown]
